FAERS Safety Report 14627238 (Version 1)
Quarter: 2018Q1

REPORT INFORMATION
  Report Type: Spontaneous
  Country: FR (occurrence: FR)
  Receive Date: 20180312
  Receipt Date: 20180312
  Transmission Date: 20180509
  Serious: Yes (Other)
  Sender: FDA-Public Use
  Company Number: FR-MYLANLABS-2018M1004595

PATIENT
  Age: 48 Year
  Sex: Male

DRUGS (2)
  1. BACLOFEN. [Suspect]
     Active Substance: BACLOFEN
     Indication: MULTIPLE SCLEROSIS
     Dosage: UNK
  2. DAL (DESOGESTREL\ETHINYL ESTRADIOL) [Interacting]
     Active Substance: DESOGESTREL\ETHINYL ESTRADIOL
     Indication: MULTIPLE SCLEROSIS
     Dosage: 10 MG TID

REACTIONS (2)
  - Drug interaction [Unknown]
  - Status epilepticus [Unknown]
